FAERS Safety Report 16060106 (Version 1)
Quarter: 2019Q1

REPORT INFORMATION
  Report Type: Spontaneous
  Country: ES (occurrence: ES)
  Receive Date: 20190312
  Receipt Date: 20190312
  Transmission Date: 20190418
  Serious: Yes (Life-Threatening, Hospitalization, Other)
  Sender: FDA-Public Use
  Company Number: ES-AUROBINDO-AUR-APL-2019-012270

PATIENT

DRUGS (1)
  1. CAPECITABINE. [Suspect]
     Active Substance: CAPECITABINE
     Indication: ADENOCARCINOMA OF COLON
     Dosage: 2000 MILLIGRAM, TWO TIMES A DAY
     Route: 048

REACTIONS (3)
  - Syncope [Unknown]
  - Diarrhoea [Recovered/Resolved]
  - Prerenal failure [Recovering/Resolving]

NARRATIVE: CASE EVENT DATE: 20190122
